FAERS Safety Report 11380629 (Version 1)
Quarter: 2015Q3

REPORT INFORMATION
  Report Type: Spontaneous
  Country: US (occurrence: US)
  Receive Date: 20150814
  Receipt Date: 20150814
  Transmission Date: 20151125
  Serious: Yes (Other)
  Sender: FDA-Public Use
  Company Number: US-JNJFOC-20150723843

PATIENT
  Sex: Male

DRUGS (3)
  1. AVELOX [Suspect]
     Active Substance: MOXIFLOXACIN HYDROCHLORIDE
     Indication: SINUSITIS
     Dosage: TEN-DAY COURSE OF 400 MG
     Route: 048
     Dates: start: 20070725, end: 20070803
  2. LEVAQUIN [Suspect]
     Active Substance: LEVOFLOXACIN
     Indication: SINUSITIS
     Dosage: SEVEN-DAY COURSE OF 500 MG
     Route: 048
     Dates: start: 20090105, end: 20090111
  3. AVELOX [Suspect]
     Active Substance: MOXIFLOXACIN HYDROCHLORIDE
     Indication: SINUSITIS
     Dosage: SEVEN-DAY COURSE OF 400 MG
     Route: 048
     Dates: start: 20080810, end: 20080816

REACTIONS (1)
  - Neuropathy peripheral [Unknown]
